FAERS Safety Report 9755889 (Version 1)
Quarter: 2013Q4

REPORT INFORMATION
  Report Type: Spontaneous
  Country: US (occurrence: US)
  Receive Date: 20131213
  Receipt Date: 20131213
  Transmission Date: 20140711
  Serious: No
  Sender: FDA-Public Use
  Company Number: US-GLAXOSMITHKLINE-A1025650A

PATIENT
  Age: 83 Year
  Sex: Male

DRUGS (2)
  1. NICODERM CQ CLEAR 21MG [Suspect]
     Indication: EX-TOBACCO USER
  2. NICOTINE PATCH UNKNOWN BRAND [Suspect]
     Indication: EX-TOBACCO USER
     Dates: start: 20130603

REACTIONS (6)
  - Fatigue [Not Recovered/Not Resolved]
  - Dizziness [Not Recovered/Not Resolved]
  - Fatigue [Recovered/Resolved]
  - Performance status decreased [Recovered/Resolved]
  - Asthenia [Not Recovered/Not Resolved]
  - Drug administration error [Unknown]
